FAERS Safety Report 4590281-6 (Version None)
Quarter: 2005Q1

REPORT INFORMATION
  Report Type: 
  Country: None (occurrence: None)
  Receive Date: 20050218
  Receipt Date: 20050218
  Transmission Date: 20050727
  Serious: Yes (Death)
  Sender: FDA-Public Use
  Company Number: None

PATIENT
  Sex: Male
  Weight: 68.0396 kg

DRUGS (19)
  1. GEMCITABINE [Suspect]
     Dosage: 1000 MG M2 IV, DAYS 1,8,15 Q 4 WKS AFTER LOADING DOSE 1000 MG M2 IV WKLY X 7 WKS
     Route: 042
     Dates: start: 20040521
  2. GEMCITABINE [Suspect]
     Dosage: 1000 MG M2 IV, DAYS 1,8,15 Q 4 WKS AFTER LOADING DOSE 1000 MG M2 IV WKLY X 7 WKS
     Route: 042
     Dates: start: 20040528
  3. GEMCITABINE [Suspect]
     Dosage: 1000 MG M2 IV, DAYS 1,8,15 Q 4 WKS AFTER LOADING DOSE 1000 MG M2 IV WKLY X 7 WKS
     Route: 042
     Dates: start: 20040604
  4. GEMCITABINE [Suspect]
     Dosage: 1000 MG M2 IV, DAYS 1,8,15 Q 4 WKS AFTER LOADING DOSE 1000 MG M2 IV WKLY X 7 WKS
     Route: 042
     Dates: start: 20040618
  5. GEMCITABINE [Suspect]
     Dosage: 1000 MG M2 IV, DAYS 1,8,15 Q 4 WKS AFTER LOADING DOSE 1000 MG M2 IV WKLY X 7 WKS
     Route: 042
     Dates: start: 20040625
  6. GEMCITABINE [Suspect]
     Dosage: 1000 MG M2 IV, DAYS 1,8,15 Q 4 WKS AFTER LOADING DOSE 1000 MG M2 IV WKLY X 7 WKS
     Route: 042
     Dates: start: 20040702
  7. GEMCITABINE [Suspect]
     Dosage: 1000 MG M2 IV, DAYS 1,8,15 Q 4 WKS AFTER LOADING DOSE 1000 MG M2 IV WKLY X 7 WKS
     Route: 042
     Dates: start: 20040716
  8. GEMCITABINE [Suspect]
     Dosage: 1000 MG M2 IV, DAYS 1,8,15 Q 4 WKS AFTER LOADING DOSE 1000 MG M2 IV WKLY X 7 WKS
     Route: 042
     Dates: start: 20040723
  9. GEMCITABINE [Suspect]
     Dosage: 1000 MG M2 IV, DAYS 1,8,15 Q 4 WKS AFTER LOADING DOSE 1000 MG M2 IV WKLY X 7 WKS
     Route: 042
     Dates: start: 20040730
  10. GEMCITABINE [Suspect]
     Dosage: 1000 MG M2 IV, DAYS 1,8,15 Q 4 WKS AFTER LOADING DOSE 1000 MG M2 IV WKLY X 7 WKS
     Route: 042
     Dates: start: 20040813
  11. GEMCITABINE [Suspect]
     Dosage: 1000 MG M2 IV, DAYS 1,8,15 Q 4 WKS AFTER LOADING DOSE 1000 MG M2 IV WKLY X 7 WKS
     Route: 042
     Dates: start: 20040820
  12. GEMCITABINE [Suspect]
     Dosage: 1000 MG M2 IV, DAYS 1,8,15 Q 4 WKS AFTER LOADING DOSE 1000 MG M2 IV WKLY X 7 WKS
     Route: 042
     Dates: start: 20040827
  13. NOVOLIN [Concomitant]
  14. ZOCOR [Concomitant]
  15. PANCREASE [Concomitant]
  16. VICODIN [Concomitant]
  17. TEMAZEPAM [Concomitant]
  18. ALDACTAZIDE [Concomitant]
  19. LASIX [Concomitant]

REACTIONS (3)
  - INTESTINAL OBSTRUCTION [None]
  - MALIGNANT NEOPLASM PROGRESSION [None]
  - PANCREATIC CARCINOMA [None]
